FAERS Safety Report 9153648 (Version 1)
Quarter: 2013Q1

REPORT INFORMATION
  Report Type: Spontaneous
  Country: US (occurrence: None)
  Receive Date: 20130306
  Receipt Date: 20130306
  Transmission Date: 20140127
  Serious: No
  Sender: FDA-Public Use
  Company Number: None

PATIENT
  Age: 65 Year
  Sex: Female
  Weight: 81.65 kg

DRUGS (1)
  1. PROPRANOLOL [Suspect]
     Indication: TREMOR
     Dosage: 2 2 PO
     Route: 048
     Dates: start: 20121215, end: 20130228

REACTIONS (6)
  - Photopsia [None]
  - Fatigue [None]
  - Weight increased [None]
  - Hypoaesthesia [None]
  - Hypoaesthesia [None]
  - Condition aggravated [None]
